FAERS Safety Report 24198198 (Version 1)
Quarter: 2024Q3

REPORT INFORMATION
  Report Type: Spontaneous
  Country: US (occurrence: US)
  Receive Date: 20240812
  Receipt Date: 20240812
  Transmission Date: 20241017
  Serious: Yes (Other)
  Sender: NOVO NORDISK
  Company Number: US-NOVOPROD-1264966

PATIENT
  Sex: Female

DRUGS (1)
  1. FIASP [Suspect]
     Active Substance: INSULIN ASPART
     Indication: Type 1 diabetes mellitus
     Dosage: 9 UNITS PER MEAL
     Route: 058
     Dates: end: 202303

REACTIONS (4)
  - Patella fracture [Unknown]
  - Fall [Unknown]
  - Meniscus injury [Unknown]
  - Inability to afford medication [Unknown]

NARRATIVE: CASE EVENT DATE: 20170101
